FAERS Safety Report 15600111 (Version 1)
Quarter: 2018Q4

REPORT INFORMATION
  Report Type: Spontaneous
  Country: IT (occurrence: IT)
  Receive Date: 20181109
  Receipt Date: 20181109
  Transmission Date: 20190205
  Serious: Yes (Hospitalization)
  Sender: FDA-Public Use
  Company Number: IT-BRISTOL-MYERS SQUIBB COMPANY-BMS-2018-102206

PATIENT
  Age: 78 Year
  Sex: Male

DRUGS (1)
  1. NIVOLUMAB [Suspect]
     Active Substance: NIVOLUMAB
     Indication: ADENOSQUAMOUS CELL LUNG CANCER
     Dosage: UNK
     Route: 042

REACTIONS (4)
  - Hypertransaminasaemia [Unknown]
  - Blood creatine phosphokinase increased [Unknown]
  - Myoglobin blood increased [Unknown]
  - Pyrexia [Unknown]

NARRATIVE: CASE EVENT DATE: 20180819
